FAERS Safety Report 9167595 (Version 1)
Quarter: 2013Q1

REPORT INFORMATION
  Report Type: Spontaneous
  Country: FR (occurrence: None)
  Receive Date: 20130307
  Receipt Date: 20130307
  Transmission Date: 20140127
  Serious: Yes (Hospitalization)
  Sender: FDA-Public Use
  Company Number: 2013FR0080

PATIENT
  Sex: Male

DRUGS (1)
  1. KINERET [Suspect]
     Dosage: 1 DOSAGE FORMS (1 DOSAGE FORMS, 1 IN 1 D)
     Route: 058
     Dates: start: 20121103

REACTIONS (5)
  - Injection site rash [None]
  - Pruritus [None]
  - Circumstance or information capable of leading to medication error [None]
  - Medication error [None]
  - Wrong technique in drug usage process [None]
